FAERS Safety Report 6400914-7 (Version None)
Quarter: 2009Q4

REPORT INFORMATION
  Report Type: 
  Country: None (occurrence: None)
  Receive Date: 20091009
  Receipt Date: 20090923
  Transmission Date: 20100525
  Serious: Yes (Other)
  Sender: FDA-Public Use
  Company Number: 2009-4027

PATIENT
  Age: 14 Year
  Sex: Male
  Weight: 39 kg

DRUGS (2)
  1. INCRELEX [Suspect]
     Dosage: 90 UNITS (45 UNITS, 2 IN 1D) SUBCUTANEOUS, 30 UNITS (15 UNINTS, 2 IN 1 D), SUBCUTANEOUS
     Route: 058
     Dates: start: 20090609, end: 20090819
  2. INCRELEX [Suspect]
     Dosage: 90 UNITS (45 UNITS, 2 IN 1D) SUBCUTANEOUS, 30 UNITS (15 UNINTS, 2 IN 1 D), SUBCUTANEOUS
     Route: 058
     Dates: start: 20090923

REACTIONS (1)
  - RATHKE'S CLEFT CYST [None]
